FAERS Safety Report 5678246-4 (Version None)
Quarter: 2008Q1

REPORT INFORMATION
  Report Type: 
  Country: None (occurrence: None)
  Receive Date: 20080319
  Receipt Date: 20080312
  Transmission Date: 20080703
  Serious: Yes (Death, Other)
  Sender: FDA-Public Use
  Company Number: 009-21880-08030774

PATIENT
  Age: 75 Year
  Sex: Male

DRUGS (4)
  1. REVLIMID [Suspect]
     Indication: MULTIPLE MYELOMA
     Dosage: 10 MG D1-21, ORAL; 25-15MG, QD D1-21, ORAL
     Route: 048
     Dates: start: 20070901, end: 20080101
  2. REVLIMID [Suspect]
     Indication: MULTIPLE MYELOMA
     Dosage: 10 MG D1-21, ORAL; 25-15MG, QD D1-21, ORAL
     Route: 048
     Dates: start: 20080101, end: 20080301
  3. ACETYLSALICYLIC ACID SRT [Concomitant]
  4. DEXAMETHASONE TAB [Interacting]

REACTIONS (2)
  - PELVIC VENOUS THROMBOSIS [None]
  - PULMONARY EMBOLISM [None]
